FAERS Safety Report 25458499 (Version 2)
Quarter: 2025Q3

REPORT INFORMATION
  Report Type: Spontaneous
  Country: EU (occurrence: EU)
  Receive Date: 20250620
  Receipt Date: 20250811
  Transmission Date: 20251020
  Serious: Yes (Other)
  Sender: NOVO NORDISK
  Company Number: EU-NOVOPROD-1459276

PATIENT
  Sex: Female
  Weight: 63 kg

DRUGS (2)
  1. WEGOVY [Suspect]
     Active Substance: SEMAGLUTIDE
     Indication: Overweight
     Dosage: 1 MG, QD
     Route: 058
     Dates: start: 20230322, end: 20250508
  2. DESOGESTREL [Concomitant]
     Active Substance: DESOGESTREL
     Indication: Contraception
     Dosage: 75 MG, QD
     Route: 048

REACTIONS (5)
  - Abortion spontaneous [Unknown]
  - Haemorrhage in pregnancy [Unknown]
  - Muscle spasms [Unknown]
  - Maternal exposure during pregnancy [Unknown]
  - Product use issue [Unknown]

NARRATIVE: CASE EVENT DATE: 20250611
